FAERS Safety Report 12127736 (Version 2)
Quarter: 2016Q1

REPORT INFORMATION
  Report Type: Report from Study
  Country: GB (occurrence: GB)
  Receive Date: 20160229
  Receipt Date: 20160330
  Transmission Date: 20160526
  Serious: Yes (Other)
  Sender: FDA-Public Use
  Company Number: GB-CELGENE-GBR-2016023976

PATIENT
  Age: 58 Year
  Sex: Male

DRUGS (1)
  1. REVLIMID [Suspect]
     Active Substance: LENALIDOMIDE
     Indication: PLASMA CELL MYELOMA
     Dosage: NOT RECEIVED
     Route: 048

REACTIONS (1)
  - Lentigo maligna [Recovered/Resolved]

NARRATIVE: CASE EVENT DATE: 20151015
